FAERS Safety Report 7364803-6 (Version None)
Quarter: 2011Q1

REPORT INFORMATION
  Report Type: 
  Country: None (occurrence: None)
  Receive Date: 20110321
  Receipt Date: 20110308
  Transmission Date: 20110831
  Serious: Yes (Other)
  Sender: FDA-Public Use
  Company Number: PHHY2010JP56449

PATIENT
  Age: 76 Year
  Sex: Female
  Weight: 45 kg

DRUGS (16)
  1. SORAFENIB TOSILATE [Concomitant]
     Indication: METASTATIC RENAL CELL CARCINOMA
     Dosage: 800 MG, UNK
     Route: 048
     Dates: start: 20080718, end: 20100510
  2. SELBEX [Concomitant]
     Dosage: 100 MG, UNK
     Route: 048
     Dates: start: 20061101
  3. DECADRON [Concomitant]
     Dosage: 0.5 MG, UNK
     Route: 048
  4. JUVELA NICOTINATE [Concomitant]
     Dosage: 400 MG, UNK
  5. KENALOG [Concomitant]
     Dosage: UNK
     Dates: start: 20100612, end: 20100712
  6. DEPAS [Concomitant]
     Dosage: 0.5 MG, UNK
     Route: 048
  7. MEVALOTIN [Concomitant]
     Dosage: 10 MG, UNK
     Route: 048
  8. ADJUST-A [Concomitant]
     Dosage: 80 MG, UNK
     Route: 048
  9. DECADRON [Concomitant]
     Dosage: 1 MG, UNK
     Route: 048
     Dates: start: 20080801
  10. POLARAMINE [Concomitant]
     Dosage: 2 MG, UNK
     Route: 048
     Dates: start: 20080801
  11. AFINITOR [Suspect]
     Indication: METASTATIC RENAL CELL CARCINOMA
     Dosage: 10 MG DAILY
     Route: 048
     Dates: start: 20100608, end: 20100705
  12. INTERFERON ALFA [Concomitant]
     Indication: METASTATIC RENAL CELL CARCINOMA
     Dosage: 6000000 IU, UNK
     Route: 065
     Dates: start: 20061110, end: 20080717
  13. LOXONIN [Concomitant]
     Dosage: 60 MG, UNK
     Route: 048
     Dates: start: 20061101
  14. METHYCOBAL [Concomitant]
     Dosage: 1000 UG, UNK
     Route: 048
  15. ROCALTROL [Concomitant]
     Dosage: 0.5 UG, UNK
     Route: 048
  16. GASTER D [Concomitant]
     Dosage: 40 MG, UNK
     Route: 048

REACTIONS (2)
  - SKIN ULCER [None]
  - NEOPLASM MALIGNANT [None]
